FAERS Safety Report 4576064-1 (Version None)
Quarter: 2005Q1

REPORT INFORMATION
  Report Type: 
  Country: None (occurrence: None)
  Receive Date: 20050201
  Receipt Date: 20050201
  Transmission Date: 20050727
  Serious: Yes (Hospitalization)
  Sender: FDA-Public Use
  Company Number: None

PATIENT
  Age: 44 Year
  Sex: Female
  Weight: 56.6996 kg

DRUGS (2)
  1. DOCETAXEL [Suspect]
     Indication: NEOPLASM MALIGNANT
     Dosage: 50MG   QWEEK X 12 DOS   INTRAVENOU
     Route: 042
     Dates: start: 20040627, end: 20040919
  2. DOCETAXEL [Suspect]
     Indication: RADICAL MASTECTOMY
     Dosage: 50MG   QWEEK X 12 DOS   INTRAVENOU
     Route: 042
     Dates: start: 20040627, end: 20040919

REACTIONS (8)
  - ABDOMINAL DISTENSION [None]
  - HYPOAESTHESIA [None]
  - OEDEMA PERIPHERAL [None]
  - PARAESTHESIA [None]
  - PERICARDIAL EFFUSION [None]
  - PLEURAL EFFUSION [None]
  - SWELLING FACE [None]
  - WEIGHT INCREASED [None]
